FAERS Safety Report 4920037-3 (Version None)
Quarter: 2006Q1

REPORT INFORMATION
  Report Type: 
  Country: None (occurrence: None)
  Receive Date: 20060217
  Receipt Date: 20060206
  Transmission Date: 20060701
  Serious: Yes (Hospitalization)
  Sender: FDA-Public Use
  Company Number: US016821

PATIENT
  Age: 40 Year
  Sex: Female
  Weight: 50 kg

DRUGS (3)
  1. MODAFINIL [Suspect]
     Indication: MULTIPLE SCLEROSIS
     Dosage: 200 MG QD ORAL
     Route: 048
     Dates: start: 20050101, end: 20050509
  2. REBIF [Concomitant]
  3. COPAXONE [Concomitant]

REACTIONS (3)
  - BLOOD CREATINE PHOSPHOKINASE INCREASED [None]
  - CHEST PAIN [None]
  - TROPONIN INCREASED [None]
